FAERS Safety Report 23836594 (Version 2)
Quarter: 2024Q2

REPORT INFORMATION
  Report Type: Spontaneous
  Country: US (occurrence: US)
  Receive Date: 20240509
  Receipt Date: 20240524
  Transmission Date: 20240716
  Serious: Yes (Other)
  Sender: FDA-Public Use
  Company Number: US-TEVA-VS-3192869

PATIENT

DRUGS (2)
  1. IMATINIB [Suspect]
     Active Substance: IMATINIB
     Indication: Pulmonary vein stenosis
     Route: 065
  2. SIROLIMUS [Suspect]
     Active Substance: SIROLIMUS
     Indication: Pulmonary vein stenosis
     Route: 065

REACTIONS (8)
  - Face oedema [Unknown]
  - Thrombocytopenia [Recovering/Resolving]
  - Medical device site haemorrhage [Recovering/Resolving]
  - Hypercholesterolaemia [Recovering/Resolving]
  - Hypertriglyceridaemia [Recovering/Resolving]
  - Toxicity to various agents [Recovering/Resolving]
  - Gastrostomy tube site complication [Recovering/Resolving]
  - Drug ineffective [Unknown]
